FAERS Safety Report 8610368-8 (Version None)
Quarter: 2012Q3

REPORT INFORMATION
  Report Type: 
  Country: None (occurrence: None)
  Receive Date: 20120822
  Receipt Date: 20120820
  Transmission Date: 20120928
  Serious: Yes (Death)
  Sender: FDA-Public Use
  Company Number: PHHY2012IN065586

PATIENT
  Sex: Female

DRUGS (1)
  1. IMATINIB MESYLATE [Suspect]
     Indication: CHRONIC MYELOID LEUKAEMIA
     Dosage: 300 MG, UNK
     Route: 048

REACTIONS (2)
  - DEATH [None]
  - FULL BLOOD COUNT DECREASED [None]
